FAERS Safety Report 15655818 (Version 2)
Quarter: 2018Q4

REPORT INFORMATION
  Report Type: Spontaneous
  Country: JP (occurrence: JP)
  Receive Date: 20181126
  Receipt Date: 20181231
  Transmission Date: 20190205
  Serious: Yes (Other)
  Sender: FDA-Public Use
  Company Number: JP-TAKEDA-2018TJP029407

PATIENT
  Age: 8 Decade
  Sex: Male

DRUGS (2)
  1. GLUFAST [Concomitant]
     Active Substance: MITIGLINIDE
     Dosage: UNK, DOSAGE IS UNKNOWN
     Route: 048
  2. ACTOS [Suspect]
     Active Substance: PIOGLITAZONE HYDROCHLORIDE
     Indication: PRODUCT USED FOR UNKNOWN INDICATION
     Dosage: 30 MG, QD
     Route: 048

REACTIONS (2)
  - Haematuria [Unknown]
  - Bladder cancer [Unknown]

NARRATIVE: CASE EVENT DATE: 201811
